FAERS Safety Report 6474837-1 (Version None)
Quarter: 2009Q4

REPORT INFORMATION
  Report Type: 
  Country: None (occurrence: None)
  Receive Date: 20091204
  Receipt Date: 20090707
  Transmission Date: 20100525
  Serious: Yes (Death, Hospitalization)
  Sender: FDA-Public Use
  Company Number: HU-ELI_LILLY_AND_COMPANY-HU200902004371

PATIENT
  Sex: Male
  Weight: 120 kg

DRUGS (6)
  1. ALIMTA [Suspect]
     Indication: ADENOCARCINOMA
     Dosage: 1200 MG, OTHER
     Route: 042
     Dates: start: 20090114
  2. CISPLATIN [Concomitant]
     Dosage: 180 MG, UNK
  3. FOLIC ACID [Concomitant]
     Dosage: 2 D/F, 3/D
     Dates: start: 20090113
  4. VITAMIN B-12 [Concomitant]
     Dosage: 1000 UG, UNK
  5. MEDROL [Concomitant]
     Dosage: 20 MG, CONTINUOUSLY
  6. ZOMETA [Interacting]
     Dates: start: 20090114

REACTIONS (5)
  - DEATH [None]
  - DRUG INTERACTION [None]
  - NEUTROPENIA [None]
  - RASH [None]
  - THROMBOCYTOPENIA [None]
